FAERS Safety Report 6460732-0 (Version None)
Quarter: 2009Q4

REPORT INFORMATION
  Report Type: 
  Country: None (occurrence: None)
  Receive Date: 20091125
  Receipt Date: 20091125
  Transmission Date: 20100525
  Serious: No
  Sender: FDA-Public Use
  Company Number: None

PATIENT
  Sex: Male
  Weight: 72 kg

DRUGS (1)
  1. FLUCONAZOLE [Suspect]
     Indication: FOLLICULITIS
     Dates: start: 20091124, end: 20091125

REACTIONS (2)
  - PENILE BLISTER [None]
  - PENILE SWELLING [None]
